FAERS Safety Report 18590931 (Version 2)
Quarter: 2020Q4

REPORT INFORMATION
  Report Type: Spontaneous
  Country: US (occurrence: US)
  Receive Date: 20201208
  Receipt Date: 20201209
  Transmission Date: 20210114
  Serious: Yes (Other)
  Sender: FDA-Public Use
  Company Number: US-PFIZER INC-2020481231

PATIENT
  Age: 56 Year
  Sex: Female
  Weight: 78.02 kg

DRUGS (1)
  1. PROTONIX [Suspect]
     Active Substance: PANTOPRAZOLE SODIUM
     Indication: GASTROOESOPHAGEAL REFLUX DISEASE
     Dosage: 40 MG, 1X/DAY (ONCE EVERY MORNING)
     Route: 048
     Dates: end: 20201125

REACTIONS (4)
  - Therapeutic response unexpected [Unknown]
  - Ear pain [Unknown]
  - Tinnitus [Not Recovered/Not Resolved]
  - Mental impairment [Unknown]

NARRATIVE: CASE EVENT DATE: 2020
